FAERS Safety Report 16395471 (Version 5)
Quarter: 2020Q3

REPORT INFORMATION
  Report Type: Report from Study
  Country: BE (occurrence: BE)
  Receive Date: 20190605
  Receipt Date: 20200728
  Transmission Date: 20201102
  Serious: Yes (Other)
  Sender: FDA-Public Use
  Company Number: BE-TAKEDA-2019TUS035054

PATIENT
  Age: 58 Year
  Sex: Male

DRUGS (1)
  1. PONATINIB [Suspect]
     Active Substance: PONATINIB
     Indication: CHRONIC MYELOID LEUKAEMIA
     Dosage: 30 MILLIGRAM, QD
     Route: 048
     Dates: start: 20161122

REACTIONS (5)
  - Hypertension [Recovered/Resolved]
  - Diabetes mellitus [Recovered/Resolved]
  - Toxic skin eruption [Recovered/Resolved]
  - Arthralgia [Recovered/Resolved]
  - Inflammation [Recovered/Resolved]

NARRATIVE: CASE EVENT DATE: 201611
